FAERS Safety Report 8318709-6 (Version None)
Quarter: 2012Q2

REPORT INFORMATION
  Report Type: 
  Country: None (occurrence: None)
  Receive Date: 20120427
  Receipt Date: 20120425
  Transmission Date: 20120825
  Serious: No
  Sender: FDA-Public Use
  Company Number: US-TEVA-334078USA

PATIENT
  Sex: Female
  Weight: 56.75 kg

DRUGS (2)
  1. GARDASIL [Concomitant]
     Indication: HUMAN PAPILLOMA VIRUS IMMUNISATION
     Dates: start: 20120410, end: 20120410
  2. PLAN B ONE-STEP [Suspect]
     Indication: POST COITAL CONTRACEPTION
     Dosage: 1.5 MILLIGRAM;
     Route: 048
     Dates: start: 20120410, end: 20120410

REACTIONS (3)
  - THROMBOSIS [None]
  - MENSTRUATION IRREGULAR [None]
  - PELVIC PAIN [None]
